FAERS Safety Report 7280869-6 (Version None)
Quarter: 2011Q1

REPORT INFORMATION
  Report Type: 
  Country: None (occurrence: None)
  Receive Date: 20110208
  Receipt Date: 20110207
  Transmission Date: 20110831
  Serious: No
  Sender: FDA-Public Use
  Company Number: US-PFIZER INC-2011027047

PATIENT
  Sex: Female
  Weight: 90.703 kg

DRUGS (1)
  1. SOLU-MEDROL [Suspect]
     Indication: MULTIPLE SCLEROSIS
     Dosage: 1 G, 1X/DAY
     Route: 042
     Dates: start: 20110202, end: 20110204

REACTIONS (4)
  - MYALGIA [None]
  - FLUID RETENTION [None]
  - WEIGHT INCREASED [None]
  - DYSPEPSIA [None]
